FAERS Safety Report 6845038-X (Version None)
Quarter: 2010Q3

REPORT INFORMATION
  Report Type: 
  Country: None (occurrence: None)
  Receive Date: 20100715
  Receipt Date: 20070812
  Transmission Date: 20110219
  Serious: No
  Sender: FDA-Public Use
  Company Number: US-PFIZER INC-2007068129

PATIENT
  Sex: Female
  Weight: 90.9 kg

DRUGS (12)
  1. CHANTIX [Suspect]
     Indication: SMOKING CESSATION THERAPY
     Dates: start: 20070811
  2. ATENOLOL [Concomitant]
     Indication: HYPERTENSION
  3. LOTREL [Concomitant]
     Indication: HYPERTENSION
     Dosage: 4-10MG
  4. POTASSIUM CHLORIDE [Concomitant]
     Dosage: 20MEQ
  5. HYDROCHLOROTHIAZIDE [Concomitant]
  6. ACIPHEX [Concomitant]
     Indication: HIATUS HERNIA
  7. MONTELUKAST [Concomitant]
  8. CLONAZEPAM [Concomitant]
     Indication: RESTLESS LEGS SYNDROME
  9. IRON [Concomitant]
  10. MINERALS NOS [Concomitant]
  11. AZMACORT [Concomitant]
     Indication: ASTHMA
     Route: 055
  12. ALBUTEROL [Concomitant]
     Indication: ASTHMA
     Route: 055

REACTIONS (2)
  - FEELING ABNORMAL [None]
  - SLEEP DISORDER [None]
